FAERS Safety Report 15859241 (Version 2)
Quarter: 2019Q1

REPORT INFORMATION
  Report Type: Spontaneous
  Country: US (occurrence: US)
  Receive Date: 20190123
  Receipt Date: 20190311
  Transmission Date: 20190417
  Serious: No
  Sender: FDA-Public Use
  Company Number: US-OTSUKA-2019_001457

PATIENT
  Sex: Female
  Weight: 56.69 kg

DRUGS (1)
  1. SAMSCA [Suspect]
     Active Substance: TOLVAPTAN
     Indication: HYPONATRAEMIA
     Dosage: 15 MG, QD (15 MG ONE TIME A DAY)
     Route: 065

REACTIONS (2)
  - Blood sodium decreased [Unknown]
  - Product dose omission [Unknown]
